FAERS Safety Report 26098841 (Version 1)
Quarter: 2025Q4

REPORT INFORMATION
  Report Type: Spontaneous
  Country: GB (occurrence: GB)
  Receive Date: 20251127
  Receipt Date: 20251127
  Transmission Date: 20260118
  Serious: No
  Sender: ALKEM
  Company Number: None

PATIENT
  Age: 31 Year
  Sex: Female

DRUGS (1)
  1. MYCOPHENOLATE MOFETIL [Suspect]
     Active Substance: MYCOPHENOLATE MOFETIL
     Indication: Product used for unknown indication
     Dosage: UNK
     Route: 065

REACTIONS (3)
  - Abdominal pain upper [Recovered/Resolved]
  - Nausea [Recovered/Resolved]
  - Headache [Recovered/Resolved]
